FAERS Safety Report 20772627 (Version 1)
Quarter: 2022Q2

REPORT INFORMATION
  Report Type: Spontaneous
  Country: US (occurrence: US)
  Receive Date: 20220502
  Receipt Date: 20220502
  Transmission Date: 20220721
  Serious: Yes (Other)
  Sender: FDA-Public Use
  Company Number: US-ORGANON-O2204USA002155

PATIENT
  Age: 37 Year
  Sex: Female
  Weight: 64.853 kg

DRUGS (1)
  1. NEXPLANON [Suspect]
     Active Substance: ETONOGESTREL
     Indication: Contraception
     Dosage: 1 ROD IN LEFT ARM (DOSE/FREQUENCY REPORTED AS 68 MG)
     Route: 059
     Dates: end: 20220419

REACTIONS (2)
  - Implant site thrombosis [Not Recovered/Not Resolved]
  - Implant site nodule [Not Recovered/Not Resolved]

NARRATIVE: CASE EVENT DATE: 20220419
